FAERS Safety Report 8830398 (Version 1)
Quarter: 2012Q4

REPORT INFORMATION
  Report Type: 
  Country: None (occurrence: US)
  Receive Date: 20121009
  Receipt Date: 20121009
  Transmission Date: 20130627
  Serious: Yes (Other)
  Sender: FDA-Public Use
  Company Number: US-TEVA-356120USA

PATIENT
  Sex: Male

DRUGS (9)
  1. CLOZAPINE [Suspect]
  2. CARBATROL [Concomitant]
     Dosage: 600 Milligram Daily;
     Route: 048
  3. ABILIFY [Concomitant]
     Dosage: 10 Milligram Daily;
  4. ZOLOFT [Concomitant]
     Dosage: 200 Milligram Daily;
  5. ATIVAN [Concomitant]
     Dosage: prn hs
  6. RESTORIL [Concomitant]
     Dosage: qhs
     Route: 048
  7. ZOCOR [Concomitant]
     Dosage: 10 Milligram Daily;
  8. ASPIRIN [Concomitant]
     Dosage: 81 Milligram Daily;
  9. MULTIVITAMIN [Concomitant]

REACTIONS (1)
  - Testis cancer [Unknown]
